FAERS Safety Report 7689076-6 (Version None)
Quarter: 2011Q3

REPORT INFORMATION
  Report Type: 
  Country: None (occurrence: None)
  Receive Date: 20110817
  Receipt Date: 20110808
  Transmission Date: 20111222
  Serious: Yes (Hospitalization, Disabling, Other)
  Sender: FDA-Public Use
  Company Number: US-MERCK-1103USA03947

PATIENT
  Age: 66 Year
  Sex: Female

DRUGS (26)
  1. FOSAMAX [Suspect]
     Route: 048
     Dates: start: 20051020, end: 20070101
  2. FOSAMAX [Suspect]
     Route: 065
     Dates: start: 20100301
  3. HYDROCHLOROTHIAZIDE [Concomitant]
     Route: 048
     Dates: start: 20090521
  4. FOSAMAX [Suspect]
     Route: 065
     Dates: start: 20100301
  5. METOPROLOL [Concomitant]
     Route: 048
     Dates: start: 20090521
  6. FOSAMAX [Suspect]
     Indication: OSTEOPOROSIS PROPHYLAXIS
     Route: 048
     Dates: start: 19970220, end: 20010101
  7. FOSAMAX [Suspect]
     Indication: OSTEOPOROSIS
     Route: 048
     Dates: start: 19970220, end: 20010101
  8. FOSAMAX [Suspect]
     Route: 048
     Dates: start: 20020511, end: 20040101
  9. FOSAMAX [Suspect]
     Route: 048
     Dates: start: 20051020, end: 20070101
  10. LIPITOR [Concomitant]
     Route: 065
  11. ZOCOR [Concomitant]
     Route: 048
     Dates: start: 20100306
  12. FOSAMAX [Suspect]
     Route: 048
     Dates: start: 20080208, end: 20100314
  13. OS-CAL [Concomitant]
     Route: 065
     Dates: start: 20090521
  14. FOSAMAX [Suspect]
     Route: 048
     Dates: start: 20100223
  15. CALCIUM CARBONATE [Concomitant]
     Route: 065
  16. FOSAMAX [Suspect]
     Route: 048
     Dates: start: 20020511, end: 20040101
  17. FOSAMAX [Suspect]
     Route: 048
     Dates: start: 20090119
  18. FOSAMAX [Suspect]
     Route: 048
     Dates: start: 20100223
  19. VITAMINS (UNSPECIFIED) [Concomitant]
     Dosage: FOR OVER 20 YEARS
     Route: 065
  20. LISINOPRIL [Concomitant]
     Route: 048
     Dates: start: 20090521
  21. LORTAB [Concomitant]
     Dosage: EVERY 4 HOURS
     Route: 065
  22. SIMVASTATIN [Concomitant]
     Route: 065
  23. FOSAMAX [Suspect]
     Route: 048
     Dates: start: 20080208, end: 20100314
  24. FOSAMAX [Suspect]
     Route: 048
     Dates: start: 20090119
  25. CALCIUM (UNSPECIFIED) AND VITAMIN D (UNSPECIFIED) [Concomitant]
     Route: 065
  26. COUMADIN [Concomitant]
     Route: 065

REACTIONS (20)
  - SQUAMOUS CELL CARCINOMA [None]
  - ADVERSE EVENT [None]
  - VENTRICULAR EXTRASYSTOLES [None]
  - IRRITABLE BOWEL SYNDROME [None]
  - FALL [None]
  - GALLBLADDER DISORDER [None]
  - BURSITIS [None]
  - LEFT ATRIAL DILATATION [None]
  - TENDON DISORDER [None]
  - OVERDOSE [None]
  - CARPAL TUNNEL SYNDROME [None]
  - INTERVERTEBRAL DISC PROTRUSION [None]
  - HYPERGLYCAEMIA [None]
  - ATRIAL FIBRILLATION [None]
  - FEMUR FRACTURE [None]
  - TOOTH DISORDER [None]
  - HYPERCHOLESTEROLAEMIA [None]
  - SPINAL OSTEOARTHRITIS [None]
  - TENDONITIS [None]
  - MITRAL VALVE INCOMPETENCE [None]
